FAERS Safety Report 6510616-4 (Version None)
Quarter: 2009Q4

REPORT INFORMATION
  Report Type: 
  Country: None (occurrence: None)
  Receive Date: 20091222
  Receipt Date: 20090105
  Transmission Date: 20100525
  Serious: No
  Sender: FDA-Public Use
  Company Number: US-ASTRAZENECA-2009UW00303

PATIENT
  Age: 68 Year
  Sex: Male
  Weight: 95.3 kg

DRUGS (6)
  1. CRESTOR [Suspect]
     Indication: BLOOD CHOLESTEROL
     Route: 048
     Dates: start: 20080901
  2. ASPIRIN [Concomitant]
  3. VITAMINS [Concomitant]
  4. GARLIC [Concomitant]
  5. VITAMIN E [Concomitant]
  6. FISH OIL [Concomitant]

REACTIONS (2)
  - JOINT SWELLING [None]
  - RASH [None]
